FAERS Safety Report 16026177 (Version 1)
Quarter: 2019Q1

REPORT INFORMATION
  Report Type: Spontaneous
  Country: US (occurrence: US)
  Receive Date: 20190302
  Receipt Date: 20190302
  Transmission Date: 20190418
  Serious: No
  Sender: FDA-Public Use
  Company Number: US-NOVOPROD-613206

PATIENT
  Age: 67 Year
  Sex: Female

DRUGS (1)
  1. VICTOZA [Suspect]
     Active Substance: LIRAGLUTIDE
     Indication: BLOOD THYROID STIMULATING HORMONE DECREASED
     Dosage: 1.2 MG MINUS 6 CLICKS
     Route: 058
     Dates: start: 201806

REACTIONS (5)
  - Feeling abnormal [Unknown]
  - Product use issue [Not Recovered/Not Resolved]
  - Sluggishness [Recovered/Resolved]
  - Weight increased [Recovered/Resolved]
  - Product use in unapproved indication [Not Recovered/Not Resolved]

NARRATIVE: CASE EVENT DATE: 2018
